FAERS Safety Report 13966422 (Version 2)
Quarter: 2020Q3

REPORT INFORMATION
  Report Type: Report from Study
  Country: CA (occurrence: CA)
  Receive Date: 20170913
  Receipt Date: 20180108
  Transmission Date: 20201105
  Serious: Yes (Hospitalization)
  Sender: FDA-Public Use
  Company Number: CA-ASTRAZENECA-2017SE93409

PATIENT
  Age: 71 Year
  Sex: Male

DRUGS (13)
  1. BISACODYL. [Concomitant]
     Active Substance: BISACODYL
     Indication: CONSTIPATION
     Route: 065
     Dates: start: 2016
  2. SENNOSIDES. [Concomitant]
     Active Substance: SENNOSIDES
     Indication: CONSTIPATION PROPHYLAXIS
     Route: 065
     Dates: start: 2015
  3. DILAUDID [Concomitant]
     Active Substance: HYDROMORPHONE HYDROCHLORIDE
     Indication: GASTROINTESTINAL PAIN
     Route: 065
     Dates: start: 201703
  4. ACETAMINOPHEN. [Concomitant]
     Active Substance: ACETAMINOPHEN
     Indication: GASTROINTESTINAL PAIN
     Route: 065
     Dates: start: 2015
  5. MOMETASONE [Concomitant]
     Active Substance: MOMETASONE
     Indication: SEASONAL ALLERGY
     Route: 065
     Dates: start: 2015
  6. TREMELIMUMAB. [Suspect]
     Active Substance: TREMELIMUMAB
     Indication: COLORECTAL CANCER
     Route: 042
     Dates: start: 20170622
  7. OTHER COPHYLAC [Concomitant]
     Indication: COUGH
     Route: 065
     Dates: start: 2014
  8. DURVALUMAB. [Suspect]
     Active Substance: DURVALUMAB
     Indication: COLORECTAL CANCER
     Route: 042
     Dates: start: 20170622
  9. ENOXAPARIN [Concomitant]
     Active Substance: ENOXAPARIN
     Indication: THROMBOSIS
     Route: 065
     Dates: start: 2014
  10. COLACE [Concomitant]
     Active Substance: DOCUSATE SODIUM
     Indication: CONSTIPATION PROPHYLAXIS
     Route: 065
     Dates: start: 201704
  11. BENYLIN [Concomitant]
     Active Substance: DIPHENHYDRAMINE HYDROCHLORIDE
     Indication: COUGH
     Route: 065
     Dates: start: 2015
  12. PANTOLOC [Concomitant]
     Active Substance: PANTOPRAZOLE SODIUM
     Indication: GASTROOESOPHAGEAL REFLUX DISEASE
     Route: 065
     Dates: start: 2015
  13. FLEET ENEMA [Concomitant]
     Active Substance: SODIUM PHOSPHATE, DIBASIC\SODIUM PHOSPHATE, MONOBASIC
     Indication: CONSTIPATION
     Route: 065
     Dates: start: 201704

REACTIONS (1)
  - Pneumonia [Recovered/Resolved]

NARRATIVE: CASE EVENT DATE: 20170909
